FAERS Safety Report 9745607 (Version 2)
Quarter: 2014Q1

REPORT INFORMATION
  Report Type: Report from Study
  Country: ES (occurrence: ES)
  Receive Date: 20131211
  Receipt Date: 20140109
  Transmission Date: 20141002
  Serious: Yes (Death, Hospitalization, Other)
  Sender: FDA-Public Use
  Company Number: ES-ALEXION PHARMACEUTICALS INC.-A201304085

PATIENT
  Age: 37 Year
  Sex: Female

DRUGS (6)
  1. SOLIRIS [Suspect]
     Indication: HAEMOLYTIC URAEMIC SYNDROME
     Dosage: 900 MG, QW
     Route: 042
     Dates: start: 20131017, end: 20131101
  2. CIPROFLOXACIN [Concomitant]
     Indication: PROPHYLAXIS
     Dosage: 400 MG, QD
     Route: 042
     Dates: start: 20131016, end: 20131031
  3. METHYLPREDNISOLONE [Concomitant]
     Indication: THROMBOCYTOPENIA
     Dosage: 40 MG, UNK
     Route: 042
     Dates: start: 20131016, end: 20131125
  4. OMEPRAZOLE [Concomitant]
     Indication: DYSPEPSIA
     Dosage: 40 MG, UNK
     Route: 042
     Dates: start: 20131014, end: 20131125
  5. METOCLOPRAMIDE [Concomitant]
     Indication: VOMITING
     Dosage: 5 MG, UNK
     Route: 048
     Dates: start: 20131016, end: 20131028
  6. ERYTHROPOIETIN [Concomitant]
     Indication: ANAEMIA
     Dosage: 4000/I-M-V
     Route: 058
     Dates: start: 20131026, end: 20131125

REACTIONS (12)
  - Septic shock [Fatal]
  - Pneumonia [Fatal]
  - Disseminated intravascular coagulation [Fatal]
  - Convulsion [Unknown]
  - Respiratory failure [Unknown]
  - Pneumonia aspiration [Recovered/Resolved]
  - Pneumonia aspiration [Recovered/Resolved]
  - Status epilepticus [Unknown]
  - Grand mal convulsion [Unknown]
  - Posterior reversible encephalopathy syndrome [Unknown]
  - Brain oedema [Unknown]
  - Leukopenia [Unknown]
